FAERS Safety Report 24627539 (Version 1)
Quarter: 2024Q4

REPORT INFORMATION
  Report Type: Spontaneous
  Country: FR (occurrence: FR)
  Receive Date: 20241116
  Receipt Date: 20241116
  Transmission Date: 20250114
  Serious: Yes (Life-Threatening, Other)
  Sender: AUROBINDO
  Company Number: FR-AFSSAPS-BX2024002047

PATIENT
  Age: 64 Year
  Sex: Male
  Weight: 92 kg

DRUGS (1)
  1. LIDOCAINE [Suspect]
     Active Substance: LIDOCAINE
     Indication: Local anaesthesia
     Dosage: 1 DOSAGE FORM, 1 TOTAL
     Route: 058
     Dates: start: 20241022, end: 20241022

REACTIONS (1)
  - Anaphylactic shock [Recovered/Resolved]

NARRATIVE: CASE EVENT DATE: 20241022
